FAERS Safety Report 14704710 (Version 1)
Quarter: 2018Q2

REPORT INFORMATION
  Report Type: Spontaneous
  Country: US (occurrence: US)
  Receive Date: 20180402
  Receipt Date: 20180402
  Transmission Date: 20180711
  Serious: Yes (Hospitalization, Other)
  Sender: FDA-Public Use
  Company Number: US-NOVOPROD-592306

PATIENT
  Age: 56 Year
  Sex: Female
  Weight: 53.97 kg

DRUGS (2)
  1. NOVOLOG [Suspect]
     Active Substance: INSULIN ASPART
     Indication: TYPE 2 DIABETES MELLITUS
     Dosage: 20 UNITS IN THE MORNING AND 10 UNITS BEFORE BEDTIME
     Route: 058
     Dates: start: 2014, end: 201801
  2. LEVEMIR [Suspect]
     Active Substance: INSULIN DETEMIR
     Indication: TYPE 2 DIABETES MELLITUS
     Dosage: 40 UNITS IN THE MORNING AND 20 UNITS BEFORE BEDTIME
     Route: 058
     Dates: start: 2014

REACTIONS (3)
  - Intracranial aneurysm [Recovered/Resolved]
  - Cataract [Not Recovered/Not Resolved]
  - Blood glucose decreased [Recovered/Resolved]

NARRATIVE: CASE EVENT DATE: 201506
